FAERS Safety Report 8158944-3 (Version None)
Quarter: 2012Q1

REPORT INFORMATION
  Report Type: 
  Country: None (occurrence: None)
  Receive Date: 20120223
  Receipt Date: 20120215
  Transmission Date: 20120608
  Serious: Yes (Death)
  Sender: FDA-Public Use
  Company Number: NL-BAXTER-2012BH003932

PATIENT
  Age: 66 Year
  Sex: Male

DRUGS (4)
  1. PHYSIOSOL IN PLASTIC CONTAINER [Suspect]
     Indication: REFUSAL OF TREATMENT BY PATIENT
     Route: 033
     Dates: end: 20120124
  2. EXTRANEAL [Suspect]
     Route: 033
     Dates: end: 20120124
  3. PHYSIOSOL IN PLASTIC CONTAINER [Suspect]
     Indication: PERITONEAL DIALYSIS
     Route: 033
     Dates: end: 20120124
  4. EXTRANEAL [Suspect]
     Indication: PERITONEAL DIALYSIS
     Route: 033
     Dates: end: 20120124

REACTIONS (1)
  - EUTHANASIA [None]
